FAERS Safety Report 25168345 (Version 2)
Quarter: 2025Q2

REPORT INFORMATION
  Report Type: Report from Study
  Country: US (occurrence: US)
  Receive Date: 20250407
  Receipt Date: 20250408
  Transmission Date: 20250716
  Serious: Yes (Death)
  Sender: MERCK SHARP AND DOHME
  Company Number: US-009507513-2270357

PATIENT

DRUGS (1)
  1. KEYTRUDA [Suspect]
     Active Substance: PEMBROLIZUMAB
     Route: 042

REACTIONS (1)
  - Death [Fatal]
